FAERS Safety Report 19120888 (Version 1)
Quarter: 2021Q2

REPORT INFORMATION
  Report Type: Spontaneous
  Country: US (occurrence: US)
  Receive Date: 20210412
  Receipt Date: 20210412
  Transmission Date: 20210717
  Serious: Yes (Hospitalization)
  Sender: FDA-Public Use
  Company Number: None

PATIENT
  Age: 81 Year
  Sex: Female
  Weight: 58 kg

DRUGS (1)
  1. BAMLANIVIMAB. [Suspect]
     Active Substance: BAMLANIVIMAB
     Indication: COVID-19
     Dosage: ?          OTHER FREQUENCY:ONCE;?
     Route: 041
     Dates: start: 20210409, end: 20210409

REACTIONS (5)
  - Dizziness [None]
  - Hypoxia [None]
  - Tachycardia [None]
  - Hypotension [None]
  - Oxygen saturation decreased [None]

NARRATIVE: CASE EVENT DATE: 20210409
